FAERS Safety Report 9123245 (Version 1)
Quarter: 2013Q1

REPORT INFORMATION
  Report Type: Spontaneous
  Country: IN (occurrence: None)
  Receive Date: 20130129
  Receipt Date: 20130129
  Transmission Date: 20140127
  Serious: Yes (Hospitalization)
  Sender: FDA-Public Use
  Company Number: 144373

PATIENT
  Age: 71 Year
  Sex: Male

DRUGS (2)
  1. AZATHIOPRINE SODIUM [Suspect]
     Indication: IMMUNOSUPPRESSANT DRUG THERAPY
     Dosage: 50MG X 1 DAILY?UNK
  2. CYCLOSPORINE [Suspect]
     Dosage: 100 MG X 2 DAILY?UNK

REACTIONS (5)
  - Cardiac myxoma [None]
  - Cerebral infarction [None]
  - Blood creatinine increased [None]
  - Refusal of treatment by relative [None]
  - Cerebral ischaemia [None]
